FAERS Safety Report 9346917 (Version 1)
Quarter: 2013Q2

REPORT INFORMATION
  Report Type: Report from Study
  Country: MX (occurrence: MX)
  Receive Date: 20130613
  Receipt Date: 20130613
  Transmission Date: 20140414
  Serious: Yes (Hospitalization, Other)
  Sender: FDA-Public Use
  Company Number: PHHY2013MX060255

PATIENT
  Age: 71 Year
  Sex: Male

DRUGS (6)
  1. GALVUS MET [Suspect]
     Indication: DIABETES MELLITUS
     Dosage: 2 DF(850/50 MG), DAILY
     Route: 048
     Dates: start: 20120303, end: 20130611
  2. GALVUS MET [Suspect]
     Dosage: 1 DF(1000/50 MG), UKN
     Dates: start: 20130611
  3. DIOVAN [Suspect]
     Indication: CARDIAC DISORDER
     Dosage: 2 UKN, UNK
     Dates: start: 201203
  4. PLAVIX [Concomitant]
     Indication: CARDIAC DISORDER
     Dosage: 1 UKN, UNK
  5. ASPIRIN PROTECT [Concomitant]
     Indication: CARDIAC DISORDER
     Dosage: 1 UKN, UNK
  6. INSULIN [Concomitant]
     Indication: DIABETES MELLITUS
     Dosage: 4 UKN, UNK

REACTIONS (2)
  - Prostate cancer [Unknown]
  - Anger [Unknown]
